FAERS Safety Report 23991826 (Version 1)
Quarter: 2024Q2

REPORT INFORMATION
  Report Type: Report from Study
  Country: US (occurrence: US)
  Receive Date: 20240619
  Receipt Date: 20240619
  Transmission Date: 20240716
  Serious: Yes (Other)
  Sender: FDA-Public Use
  Company Number: US-ABBVIE-5286609

PATIENT
  Sex: Female
  Weight: 77 kg

DRUGS (1)
  1. HUMIRA [Suspect]
     Active Substance: ADALIMUMAB
     Indication: Colitis ulcerative
     Dosage: FORM STRENGTH: 40 MILLIGRAMS
     Route: 058
     Dates: start: 20190702

REACTIONS (5)
  - Hiatus hernia [Recovered/Resolved]
  - Large intestine polyp [Unknown]
  - Gastrointestinal disorder [Unknown]
  - Solar lentigo [Unknown]
  - Adrenal disorder [Unknown]
